FAERS Safety Report 4392754-8 (Version None)
Quarter: 2004Q3

REPORT INFORMATION
  Report Type: 
  Country: None (occurrence: None)
  Receive Date: 20040706
  Receipt Date: 20040622
  Transmission Date: 20050211
  Serious: Yes (Life-Threatening)
  Sender: FDA-Public Use
  Company Number: 2004UW08487

PATIENT
  Age: 62 Year
  Sex: Male
  Weight: 102.5129 kg

DRUGS (11)
  1. CRESTOR [Suspect]
     Dosage: 10 MG QD PO
     Route: 048
     Dates: start: 20040123
  2. CIALIS [Suspect]
     Indication: ORGANIC ERECTILE DYSFUNCTION
     Dosage: 20 MG PRN PO
     Route: 048
     Dates: start: 20040306, end: 20040307
  3. CIALIS [Suspect]
     Indication: ORGANIC ERECTILE DYSFUNCTION
     Dosage: 20 MG PRN PO
     Route: 048
     Dates: start: 20040308, end: 20040308
  4. COZAAR [Suspect]
     Indication: HYPERTENSION
     Dosage: 50 MG QD
     Dates: start: 20040306
  5. ASPIRIN [Concomitant]
  6. HYDROCHLOROTHIAZIDE [Concomitant]
  7. POTASSIUM CHLORIDE [Concomitant]
  8. VITAMIN C [Concomitant]
  9. FISH OIL [Concomitant]
  10. PEPCID AC [Concomitant]
  11. VIAGRA [Concomitant]

REACTIONS (6)
  - DIZZINESS [None]
  - DRUG INTERACTION [None]
  - HEART RATE INCREASED [None]
  - HYPOTENSION [None]
  - MYOCARDIAL INFARCTION [None]
  - MYOCARDIAL ISCHAEMIA [None]
